FAERS Safety Report 7373001-1 (Version None)
Quarter: 2011Q1

REPORT INFORMATION
  Report Type: 
  Country: None (occurrence: None)
  Receive Date: 20110324
  Receipt Date: 20110321
  Transmission Date: 20110831
  Serious: Yes (Hospitalization)
  Sender: FDA-Public Use
  Company Number: CA-GENZYME-MOZO-1000417

PATIENT
  Sex: Male
  Weight: 134 kg

DRUGS (53)
  1. FLUDARA [Concomitant]
     Indication: BONE MARROW CONDITIONING REGIMEN
     Dosage: 102 MG, UNK
     Route: 042
     Dates: start: 20100927, end: 20100930
  2. MYCOPHENOLATE MEFETIL [Concomitant]
     Indication: PRODUCT USED FOR UNKNOWN INDICATION
     Dosage: 1500 MG, UNK
     Route: 048
     Dates: start: 20101002
  3. NORVASC [Concomitant]
     Indication: PRODUCT USED FOR UNKNOWN INDICATION
     Dosage: 5 G, QD
     Route: 048
     Dates: start: 20100926, end: 20100930
  4. STEMETIL [Concomitant]
     Indication: PROPHYLAXIS OF NAUSEA AND VOMITING
     Dosage: 10 MG, QID
     Route: 042
     Dates: start: 20101022, end: 20101025
  5. IMOVANE [Concomitant]
     Indication: INSOMNIA
     Dosage: 7.5 MG, PRN
     Route: 048
     Dates: start: 20101004, end: 20101023
  6. CLONAZEPAM [Concomitant]
     Indication: DEPRESSION
     Dosage: 0.5 G, BID
     Route: 048
     Dates: start: 20101026, end: 20101029
  7. ACYCLOVIR [Concomitant]
     Indication: ANTIVIRAL PROPHYLAXIS
     Dosage: 200 MG, BID
     Route: 048
     Dates: start: 20101003, end: 20101017
  8. LISINOPRIL [Concomitant]
     Indication: PRODUCT USED FOR UNKNOWN INDICATION
     Dosage: 10 MG, QD
     Route: 048
  9. NORVASC [Concomitant]
     Dosage: 10 MG, QD
     Route: 048
     Dates: start: 20101027, end: 20101102
  10. SEPTRA [Concomitant]
     Indication: PRODUCT USED FOR UNKNOWN INDICATION
     Dosage: 2 UNK, UNK
     Route: 048
  11. PANTOPRAZOLE [Concomitant]
     Indication: PROPHYLAXIS
     Dosage: 40 MG, QD
     Route: 048
     Dates: start: 20100924, end: 20101004
  12. TAZOCIN [Concomitant]
     Indication: FEBRILE NEUTROPENIA
     Dosage: 4.5 G, TID
     Route: 042
     Dates: start: 20101012, end: 20101017
  13. OCTREOTIDE ACETATE [Concomitant]
     Indication: ACUTE GRAFT VERSUS HOST DISEASE IN INTESTINE
     Dosage: 500 MG, QDX3
     Route: 058
     Dates: start: 20101022, end: 20101024
  14. MAXERAN [Concomitant]
     Indication: PROPHYLAXIS OF NAUSEA AND VOMITING
     Dosage: 30 MG, UNK
     Route: 042
     Dates: start: 20101003, end: 20101012
  15. CYCLOSPORINE [Concomitant]
     Indication: GRAFT VERSUS HOST DISEASE
     Dosage: 280 MG, UNK
     Route: 042
     Dates: start: 20101001, end: 20101010
  16. CYCLOSPORINE [Concomitant]
     Dosage: 210 MG, UNK
     Route: 042
     Dates: start: 20101014, end: 20101014
  17. CYCLOSPORINE [Concomitant]
     Dosage: 300 MG, UNK
     Route: 048
     Dates: start: 20101017, end: 20101017
  18. NORVASC [Concomitant]
     Indication: HYPERTENSION
     Dosage: 10 MG, QD
     Route: 048
  19. DEXAMETHASONE [Concomitant]
     Indication: NAUSEA
     Dosage: 10 MG, QD
     Route: 042
     Dates: start: 20100927, end: 20101001
  20. DILAUDID [Concomitant]
     Indication: MIGRAINE
     Dosage: 4 MG, PRN
     Route: 042
     Dates: start: 20101022, end: 20101031
  21. MAGNESIUM SULPHATE POTASSIUM CHLORIDE [Concomitant]
     Indication: PROPHYLAXIS
     Dosage: 5 G, PRN
     Route: 042
     Dates: start: 20101006, end: 20101030
  22. METOPROLOL [Concomitant]
     Indication: HYPERTENSION
     Dosage: 5 MG, TID
     Route: 048
     Dates: start: 20101013, end: 20101016
  23. DOMPERIDONE [Concomitant]
     Indication: NAUSEA
     Dosage: 10 MG, UNK
     Route: 048
     Dates: start: 20101016, end: 20101018
  24. PEPCID [Concomitant]
     Indication: PROPHYLAXIS
     Dosage: 20 MG, UNK
     Route: 042
     Dates: start: 20101003, end: 20101016
  25. CYCLOSPORINE [Concomitant]
     Dosage: 100 MG, UNK
     Route: 048
     Dates: start: 20101030, end: 20101102
  26. BUSULFAN [Concomitant]
     Indication: BONE MARROW CONDITIONING REGIMEN
     Dosage: 300 MG, UNK
     Route: 042
     Dates: start: 20100927, end: 20100930
  27. ATENOLOL [Concomitant]
     Indication: HYPERTENSION
     Dosage: 50 MG, BID
     Route: 048
     Dates: start: 20101026
  28. RANITIDINE [Concomitant]
     Indication: PROPHYLAXIS AGAINST GASTROINTESTINAL ULCER
     Dosage: 150 MG, BID
     Route: 048
     Dates: start: 20101016, end: 20101019
  29. BUDESONIDE [Concomitant]
     Indication: PROPHYLAXIS AGAINST GRAFT VERSUS HOST DISEASE
     Dosage: 9 MG, QD
     Route: 048
     Dates: start: 20101022, end: 20101102
  30. COTRIM [Concomitant]
     Indication: PROPHYLAXIS OF NAUSEA AND VOMITING
     Dosage: 400 MG, UNK
     Route: 048
     Dates: start: 20101022, end: 20101102
  31. MOZOBIL [Suspect]
     Indication: ACUTE MYELOID LEUKAEMIA
     Dosage: 23 MG, UNK
     Route: 058
     Dates: start: 20100927, end: 20100927
  32. CIPROFLOXACIN [Concomitant]
     Indication: INFECTION PROPHYLAXIS
     Dosage: 500 MG, QD
     Route: 048
     Dates: start: 20100816, end: 20101025
  33. MICAFUNGIN [Concomitant]
     Indication: ANTIFUNGAL PROPHYLAXIS
     Dosage: 50 MG, QD
     Route: 042
     Dates: start: 20101023, end: 20101024
  34. LINEZOLID [Concomitant]
     Indication: PRODUCT USED FOR UNKNOWN INDICATION
     Dosage: 600 MG, QD
     Route: 042
     Dates: start: 20101022, end: 20101025
  35. LASIX [Concomitant]
     Indication: PROPHYLAXIS
     Dosage: 20 MG, BID
     Route: 042
     Dates: start: 20101015, end: 20101016
  36. GANCICLOVIR [Concomitant]
     Indication: CYTOMEGALOVIRUS TEST POSITIVE
     Dosage: 600 MG, UNK
     Route: 042
     Dates: start: 20101026, end: 20101102
  37. MAGNESIUM OXIDE [Concomitant]
     Indication: SUPPLEMENTATION THERAPY
     Dosage: 835 MG, UNK
     Route: 048
     Dates: start: 20101017, end: 20101018
  38. FLUCONAZOLE [Concomitant]
     Indication: ANTIFUNGAL PROPHYLAXIS
     Dosage: 150 MG, UNK
     Route: 048
     Dates: start: 20101022, end: 20101102
  39. BENADRYL [Concomitant]
     Indication: ALLERGY PROPHYLAXIS
     Dosage: 50 MG, TID
     Route: 042
     Dates: start: 20101004, end: 20101013
  40. CYCLOSPORINE [Concomitant]
     Dosage: 100 MG, UNK
     Route: 048
     Dates: start: 20101018, end: 20101018
  41. ALLOPURINOL [Concomitant]
     Indication: PROPHYLAXIS
     Dosage: 300 MG, TID
     Route: 048
     Dates: start: 20100924, end: 20101003
  42. MICAFUNGIN [Concomitant]
     Indication: INFECTION PROPHYLAXIS
     Dosage: 50 MG, QD
     Route: 042
     Dates: start: 20100927, end: 20101017
  43. NYSTATIN [Concomitant]
     Indication: OEDEMA MOUTH
     Dosage: 1.5 G, QS
     Route: 061
     Dates: start: 20101026, end: 20101102
  44. LISINOPRIL [Concomitant]
     Indication: HYPERTENSION
     Dosage: 5 MG, QD
     Route: 048
     Dates: start: 20100927, end: 20101017
  45. CYCLOSPORINE [Concomitant]
     Dosage: 190 MG, BID
     Route: 042
     Dates: start: 20101015, end: 20101016
  46. CYCLOSPORINE [Concomitant]
     Dosage: 90 MG, UNK
     Route: 042
     Dates: start: 20101028, end: 20101030
  47. ATIVAN [Concomitant]
     Indication: PRODUCT USED FOR UNKNOWN INDICATION
     Dosage: UNK
  48. PHENYTOIN [Concomitant]
     Indication: PROPHYLAXIS OF NAUSEA AND VOMITING
     Dosage: 100 MG, TID
     Route: 048
     Dates: start: 20100926, end: 20101003
  49. GRANISETRON HCL [Concomitant]
     Indication: NAUSEA
     Dosage: 1 MG, QD
     Route: 042
     Dates: start: 20100927, end: 20100930
  50. MORPHINE [Concomitant]
     Indication: HEADACHE
     Dosage: 2 MG, UNK
     Route: 042
     Dates: start: 20100927, end: 20100930
  51. OCTREOTIDE ACETATE [Concomitant]
     Indication: DIARRHOEA
  52. CYCLOSPORINE [Concomitant]
     Dosage: 240 MG, UNK
     Route: 042
     Dates: start: 20101011, end: 20101013
  53. PREDNISOLONE [Concomitant]
     Indication: GRAFT VERSUS HOST DISEASE
     Dosage: 50 MG, UNK
     Route: 048
     Dates: start: 20101031

REACTIONS (9)
  - HYPOTENSION [None]
  - CYTOMEGALOVIRUS INFECTION [None]
  - BK VIRUS INFECTION [None]
  - DEHYDRATION [None]
  - MUCOSAL INFLAMMATION [None]
  - CYSTITIS HAEMORRHAGIC [None]
  - SEPSIS [None]
  - ACUTE GRAFT VERSUS HOST DISEASE IN INTESTINE [None]
  - HYPERBILIRUBINAEMIA [None]
